FAERS Safety Report 5470166-3 (Version None)
Quarter: 2007Q3

REPORT INFORMATION
  Report Type: 
  Country: None (occurrence: None)
  Receive Date: 20070924
  Receipt Date: 20070911
  Transmission Date: 20080115
  Serious: Yes (Other)
  Sender: FDA-Public Use
  Company Number: GXKR2007US07907

PATIENT
  Age: 22 Year
  Sex: Female

DRUGS (10)
  1. PREDNISONE [Suspect]
     Dosage: 15 MG, QD,
  2. MYCOPHENOLATE MOFETIL [Suspect]
     Dosage: 500 MG, TID,
  3. TACROLIMUS [Suspect]
     Dosage: 2 MG, BID,
  4. SULFAMETHOXAZOLE AND TRIMETHOPRIM [Concomitant]
  5. MAGNESIUM OXIDE [Concomitant]
  6. GANCICLOVIR [Concomitant]
  7. CLONIDINE [Concomitant]
  8. ASPIRIN [Concomitant]
  9. OMEPRAZOLE [Concomitant]
  10. ERYTHROPOIETIN                  (ERYTHROPOIETIN) [Concomitant]

REACTIONS (8)
  - HAEMATOCRIT DECREASED [None]
  - IMMUNE SYSTEM DISORDER [None]
  - IMMUNOSUPPRESSION [None]
  - INFECTION [None]
  - NEPHROGENIC SYSTEMIC FIBROSIS [None]
  - OEDEMA PERIPHERAL [None]
  - PEAU D'ORANGE [None]
  - RASH MACULO-PAPULAR [None]
